FAERS Safety Report 7997064-5 (Version None)
Quarter: 2011Q4

REPORT INFORMATION
  Report Type: 
  Country: None (occurrence: None)
  Receive Date: 20111221
  Receipt Date: 20111212
  Transmission Date: 20120403
  Serious: Yes (Other)
  Sender: FDA-Public Use
  Company Number: NL-B.I. PHARMACEUTICALS,INC./RIDGEFIELD-2011-BP-28449YA

PATIENT
  Age: 71 Year
  Sex: Male

DRUGS (3)
  1. TAMSULOSIN HCL [Suspect]
     Indication: BENIGN PROSTATIC HYPERPLASIA
     Dosage: 0.4 MG
     Route: 065
  2. CARBASALATE CALCIUM (CARBASALATE CALCIUM) [Concomitant]
  3. SIMVASTATIN [Concomitant]

REACTIONS (3)
  - VISUAL ACUITY REDUCED [None]
  - PNEUMONITIS [None]
  - ANGIOEDEMA [None]
